FAERS Safety Report 9218064 (Version 7)
Quarter: 2016Q2

REPORT INFORMATION
  Report Type: Spontaneous
  Country: US (occurrence: US)
  Receive Date: 20130408
  Receipt Date: 20160407
  Transmission Date: 20160815
  Serious: Yes (Disabling, Other)
  Sender: FDA-Public Use
  Company Number: US-MERCK-1304USA001970

PATIENT
  Sex: Male

DRUGS (5)
  1. FINASTERIDE. [Suspect]
     Active Substance: FINASTERIDE
     Indication: ANDROGENETIC ALOPECIA
     Dosage: 5 MG,  1/4 TABLET
     Route: 048
     Dates: start: 201005, end: 201206
  2. NIZORAL [Concomitant]
     Active Substance: KETOCONAZOLE
     Indication: SEBORRHOEIC DERMATITIS
     Dosage: UNK
     Route: 061
     Dates: start: 20000417
  3. PROPECIA [Suspect]
     Active Substance: FINASTERIDE
     Indication: ANDROGENETIC ALOPECIA
     Dosage: 1 MG, UNK
     Route: 048
     Dates: start: 20010422, end: 200202
  4. FINASTERIDE. [Suspect]
     Active Substance: FINASTERIDE
     Dosage: 5 MG, UNK
     Route: 048
     Dates: start: 20100531, end: 201206
  5. PROSCAR [Suspect]
     Active Substance: FINASTERIDE
     Indication: ANDROGENETIC ALOPECIA
     Dosage: 5 MG, 1/4 TABLET DAILY
     Route: 048
     Dates: start: 20020308, end: 201005

REACTIONS (17)
  - Erectile dysfunction [Not Recovered/Not Resolved]
  - Autoimmune thyroiditis [Unknown]
  - Blood testosterone decreased [Unknown]
  - Drug administration error [Unknown]
  - Dermabrasion [Unknown]
  - Dermatitis [Unknown]
  - Libido decreased [Not Recovered/Not Resolved]
  - Depression [Not Recovered/Not Resolved]
  - Semen volume decreased [Not Recovered/Not Resolved]
  - Ejaculation disorder [Not Recovered/Not Resolved]
  - Thyroid mass [Unknown]
  - Malaise [Unknown]
  - Rash [Unknown]
  - Thyroidectomy [Unknown]
  - Blood cholesterol increased [Unknown]
  - Dermatitis [Unknown]
  - Wrong technique in product usage process [Unknown]

NARRATIVE: CASE EVENT DATE: 200202
